FAERS Safety Report 7280767-8 (Version None)
Quarter: 2011Q1

REPORT INFORMATION
  Report Type: 
  Country: None (occurrence: None)
  Receive Date: 20110203
  Receipt Date: 20110203
  Transmission Date: 20110831
  Serious: Yes (Life-Threatening, Hospitalization, Other)
  Sender: FDA-Public Use
  Company Number: None

PATIENT
  Age: 63 Year
  Sex: Male
  Weight: 83.0083 kg

DRUGS (2)
  1. LEVAQUIN [Suspect]
     Indication: INFECTION
     Dosage: 500MG DAILY PO
     Route: 048
     Dates: start: 20101104, end: 20101110
  2. NAPROXEN [Concomitant]

REACTIONS (12)
  - TREMOR [None]
  - DYSPEPSIA [None]
  - HAEMATOCHEZIA [None]
  - HYPOAESTHESIA [None]
  - GASTRIC DISORDER [None]
  - SLEEP DISORDER [None]
  - VOMITING [None]
  - OEDEMA PERIPHERAL [None]
  - PYREXIA [None]
  - FLATULENCE [None]
  - DIARRHOEA [None]
  - PAIN IN EXTREMITY [None]
